FAERS Safety Report 20436757 (Version 1)
Quarter: 2022Q1

REPORT INFORMATION
  Report Type: Spontaneous
  Country: US (occurrence: None)
  Receive Date: 20220204
  Receipt Date: 20220204
  Transmission Date: 20220423
  Serious: Yes (Hospitalization)
  Sender: FDA-Public Use
  Company Number: None

PATIENT
  Sex: Female

DRUGS (1)
  1. MAVYRET [Suspect]
     Active Substance: GLECAPREVIR\PIBRENTASVIR
     Indication: Hepatitis C
     Dosage: OTHER QUANTITY : 100-40MG;?FREQUENCY : DAILY;?
     Route: 048

REACTIONS (2)
  - Blood bilirubin increased [None]
  - Therapy interrupted [None]
